FAERS Safety Report 20143574 (Version 3)
Quarter: 2025Q2

REPORT INFORMATION
  Report Type: Spontaneous
  Country: PT (occurrence: PT)
  Receive Date: 20211203
  Receipt Date: 20250514
  Transmission Date: 20250716
  Serious: Yes (Other)
  Sender: MERCK SHARP & DOHME LLC
  Company Number: None

PATIENT
  Age: 61 Year
  Sex: Female

DRUGS (3)
  1. TEMOZOLOMIDE [Suspect]
     Active Substance: TEMOZOLOMIDE
     Indication: Metastases to liver
     Route: 065
  2. CAPECITABINE [Suspect]
     Active Substance: CAPECITABINE
     Indication: Metastases to liver
     Route: 048
  3. TINZAPARIN [Suspect]
     Active Substance: TINZAPARIN
     Indication: Neuroendocrine carcinoma
     Route: 065

REACTIONS (2)
  - Disseminated intravascular coagulation [Unknown]
  - Product use in unapproved indication [Unknown]
